FAERS Safety Report 6769594-5 (Version None)
Quarter: 2010Q2

REPORT INFORMATION
  Report Type: 
  Country: None (occurrence: None)
  Receive Date: 20100615
  Receipt Date: 20100604
  Transmission Date: 20101027
  Serious: Yes (Hospitalization)
  Sender: FDA-Public Use
  Company Number: US-WYE-H15008110

PATIENT
  Sex: Male
  Weight: 87.1 kg

DRUGS (12)
  1. TEMSIROLIMUS [Suspect]
     Indication: PROSTATE CANCER
     Route: 042
     Dates: start: 20100421, end: 20100421
  2. LASIX [Concomitant]
     Route: 065
     Dates: start: 20081031
  3. TRELSTAR [Concomitant]
     Route: 030
     Dates: start: 20090520
  4. POTASSIUM CHLORIDE [Concomitant]
     Route: 048
     Dates: start: 20090918
  5. SODIUM CHLORIDE [Concomitant]
     Dosage: DOSE NOT SPECIFIED, PRN
     Route: 045
     Dates: start: 20100430
  6. ACCUPRIL [Concomitant]
     Route: 065
     Dates: start: 20100226
  7. PRILOSEC [Concomitant]
     Route: 048
     Dates: start: 20100226
  8. OXYCONTIN [Suspect]
     Indication: PAIN
     Route: 065
     Dates: start: 20100329, end: 20100501
  9. BACTROBAN [Concomitant]
     Dosage: APPLY TO BOTH NARES TWICE DAILY
     Route: 061
     Dates: start: 20100430
  10. AYR SALINE NASAL DROPS [Concomitant]
     Dosage: DOSE NOT SPECIFIED
     Route: 045
     Dates: start: 20100430
  11. METOPROLOL TARTRATE [Concomitant]
     Route: 065
     Dates: start: 20070131
  12. OXYCODONE [Suspect]
     Indication: PAIN
     Dosage: 5 MG, 1 TO 2 TABS Q 6 HRS PRN
     Route: 048
     Dates: start: 20100205, end: 20100501

REACTIONS (1)
  - CONFUSIONAL STATE [None]
